FAERS Safety Report 5563585-8 (Version None)
Quarter: 2007Q4

REPORT INFORMATION
  Report Type: 
  Country: None (occurrence: None)
  Receive Date: 20071214
  Receipt Date: 20071214
  Transmission Date: 20080405
  Serious: Yes (Hospitalization)
  Sender: FDA-Public Use
  Company Number: None

PATIENT
  Sex: Male
  Weight: 71.2147 kg

DRUGS (9)
  1. CISPLATIN [Suspect]
     Indication: NEOPLASM MALIGNANT
     Dosage: 30MG/M2 IV
     Route: 042
     Dates: start: 20071114
  2. ERBITUX [Suspect]
     Indication: NEOPLASM MALIGNANT
     Dosage: 250MG/M2 IV
     Route: 042
     Dates: start: 20070912
  3. RADIATION THERAPY [Suspect]
     Indication: NEOPLASM MALIGNANT
     Dates: start: 20071114
  4. ROXICET [Concomitant]
  5. COLACE [Concomitant]
  6. SENNA [Concomitant]
  7. LIDOCAINE HCL VISCOUS [Concomitant]
  8. MAG OXIDE [Concomitant]
  9. MINOCYCLINE HCL [Concomitant]

REACTIONS (5)
  - DYSPHAGIA [None]
  - MUCOSAL INFLAMMATION [None]
  - ORAL INTAKE REDUCED [None]
  - PAIN [None]
  - PYREXIA [None]
